FAERS Safety Report 6783106-1 (Version None)
Quarter: 2010Q2

REPORT INFORMATION
  Report Type: 
  Country: None (occurrence: None)
  Receive Date: 20100622
  Receipt Date: 20100106
  Transmission Date: 20101027
  Serious: Yes (Other)
  Sender: FDA-Public Use
  Company Number: US-ASTRAZENECA-2009UW19226

PATIENT
  Age: 44 Year
  Sex: Female
  Weight: 95.3 kg

DRUGS (13)
  1. SEROQUEL [Suspect]
     Indication: SLEEP DISORDER
     Dosage: 25-400MG
     Route: 048
     Dates: start: 19980101
  2. SEROQUEL [Suspect]
     Indication: DEPRESSION
     Dosage: 25-400MG
     Route: 048
     Dates: start: 19980101
  3. RISPERDAL [Concomitant]
     Dates: start: 20040101
  4. THORAZINE [Concomitant]
  5. PAXIL [Concomitant]
     Dates: start: 20040101
  6. TRAZODONE HYDROCHLORIDE [Concomitant]
     Dates: start: 20040101
  7. EFFEXOR [Concomitant]
     Dates: start: 20050101
  8. LAMICTAL [Concomitant]
     Dates: start: 20070101
  9. ZYPREXA [Concomitant]
  10. SYMBYAX [Concomitant]
  11. CELEBREX [Concomitant]
     Dates: start: 20040601
  12. AMBIEN [Concomitant]
     Dates: start: 20040603
  13. DIOVAN [Concomitant]
     Dates: start: 20060321

REACTIONS (2)
  - DIABETIC NEUROPATHY [None]
  - TYPE 2 DIABETES MELLITUS [None]
